FAERS Safety Report 5397514-7 (Version None)
Quarter: 2007Q3

REPORT INFORMATION
  Report Type: 
  Country: None (occurrence: None)
  Receive Date: 20070726
  Receipt Date: 20070717
  Transmission Date: 20080115
  Serious: Yes (Hospitalization)
  Sender: FDA-Public Use
  Company Number: IT-ELI_LILLY_AND_COMPANY-IT200707001035

PATIENT
  Age: 33 Year
  Sex: Male
  Weight: 80 kg

DRUGS (4)
  1. ZYPREXA [Suspect]
     Route: 048
     Dates: start: 20070623
  2. HALDOL [Concomitant]
     Indication: PSYCHOTIC DISORDER
     Dosage: 0.75 MG, DAILY (1/D)
     Dates: start: 20060925
  3. ANSIOLIN [Concomitant]
     Dosage: UNK, DAILY (1/D)
     Dates: start: 20060608
  4. ELOPRAM [Concomitant]
     Dosage: 10 MG, DAILY (1/D)
     Dates: start: 20070205

REACTIONS (3)
  - DRUG TOXICITY [None]
  - INTENTIONAL OVERDOSE [None]
  - SUICIDE ATTEMPT [None]
